FAERS Safety Report 22307272 (Version 1)
Quarter: 2023Q2

REPORT INFORMATION
  Report Type: Spontaneous
  Country: US (occurrence: None)
  Receive Date: 20230511
  Receipt Date: 20230511
  Transmission Date: 20230721
  Serious: No
  Sender: FDA-Public Use
  Company Number: US-ROCHE-3093327

PATIENT
  Sex: Male

DRUGS (1)
  1. OCREVUS [Suspect]
     Active Substance: OCRELIZUMAB
     Indication: Multiple sclerosis
     Dosage: ON DAY 0 AND DAY 15
     Route: 042
     Dates: start: 20211214

REACTIONS (3)
  - Pain [Unknown]
  - Paraesthesia [Unknown]
  - Pain in extremity [Unknown]
